FAERS Safety Report 17308365 (Version 2)
Quarter: 2020Q1

REPORT INFORMATION
  Report Type: Spontaneous
  Country: FR (occurrence: FR)
  Receive Date: 20200123
  Receipt Date: 20200127
  Transmission Date: 20200409
  Serious: Yes (Death, Hospitalization, Other)
  Sender: FDA-Public Use
  Company Number: FR-MYLANLABS-2020M1007437

PATIENT
  Age: 51 Year
  Sex: Female
  Weight: 65 kg

DRUGS (5)
  1. IBUPROFEN. [Interacting]
     Active Substance: IBUPROFEN
     Indication: PAIN
     Dosage: UNK
     Route: 048
     Dates: end: 20191015
  2. DICLOFENAC [Suspect]
     Active Substance: DICLOFENAC
     Indication: PAIN
     Dosage: UNK
     Route: 048
  3. PANTOPRAZOLE [Interacting]
     Active Substance: PANTOPRAZOLE
     Indication: PROPHYLAXIS AGAINST GASTROINTESTINAL ULCER
     Dosage: UNK
     Route: 048
  4. KETOPROFEN. [Interacting]
     Active Substance: KETOPROFEN
     Indication: SCIATICA
     Dosage: UNK
     Route: 048
     Dates: start: 20191015
  5. METOJECT [Interacting]
     Active Substance: METHOTREXATE SODIUM
     Indication: CROHN^S DISEASE
     Dosage: 15 MILLIGRAM, QW
     Route: 058
     Dates: start: 201910

REACTIONS (3)
  - Septic shock [Fatal]
  - Pancytopenia [Fatal]
  - Drug interaction [Unknown]

NARRATIVE: CASE EVENT DATE: 201910
